FAERS Safety Report 19896542 (Version 1)
Quarter: 2021Q3

REPORT INFORMATION
  Report Type: Spontaneous
  Country: JP (occurrence: JP)
  Receive Date: 20210929
  Receipt Date: 20210929
  Transmission Date: 20211014
  Serious: Yes (Other)
  Sender: FDA-Public Use
  Company Number: JP-ORGANON-O2109JPN000351J

PATIENT
  Age: 85 Year
  Sex: Female

DRUGS (3)
  1. FOSAMAC TABLETS 35MG [Suspect]
     Active Substance: ALENDRONATE SODIUM
     Dosage: UNK
     Route: 048
  2. FOSAMAC TABLETS 35MG [Suspect]
     Active Substance: ALENDRONATE SODIUM
     Dosage: 35 MILLIGRAM
     Route: 048
     Dates: start: 2001
  3. FOSAMAC TABLETS 35MG [Suspect]
     Active Substance: ALENDRONATE SODIUM
     Dosage: UNK
     Route: 048

REACTIONS (5)
  - Cervical vertebral fracture [Unknown]
  - Product use in unapproved indication [Unknown]
  - Wrist fracture [Unknown]
  - Hand fracture [Unknown]
  - Tooth extraction [Unknown]
